FAERS Safety Report 13654461 (Version 1)
Quarter: 2017Q2

REPORT INFORMATION
  Report Type: Spontaneous
  Country: US (occurrence: US)
  Receive Date: 20170615
  Receipt Date: 20170615
  Transmission Date: 20170830
  Serious: No
  Sender: FDA-Public Use
  Company Number: US-ZYDUS-012004

PATIENT
  Age: 51 Year
  Sex: Male

DRUGS (3)
  1. METFORMIN [Suspect]
     Active Substance: METFORMIN HYDROCHLORIDE
     Indication: DIABETES MELLITUS
     Route: 048
     Dates: end: 20160723
  2. GLIPIZIDE. [Concomitant]
     Active Substance: GLIPIZIDE
     Indication: DIABETES MELLITUS
     Route: 048
  3. METFORMIN [Suspect]
     Active Substance: METFORMIN HYDROCHLORIDE
     Indication: DIABETES MELLITUS
     Route: 048
     Dates: start: 20160724, end: 2016

REACTIONS (10)
  - Nausea [Recovered/Resolved]
  - Aphasia [Recovered/Resolved]
  - Constipation [Recovered/Resolved]
  - Hypertension [Recovered/Resolved]
  - Muscle spasms [Recovered/Resolved]
  - Headache [Recovered/Resolved]
  - Dyspnoea [Recovered/Resolved]
  - Dry mouth [Recovered/Resolved]
  - Diarrhoea [Recovered/Resolved]
  - Tongue dry [Recovered/Resolved]

NARRATIVE: CASE EVENT DATE: 20160724
